FAERS Safety Report 24204743 (Version 1)
Quarter: 2024Q3

REPORT INFORMATION
  Report Type: Spontaneous
  Country: US (occurrence: US)
  Receive Date: 20240813
  Receipt Date: 20240813
  Transmission Date: 20241016
  Serious: Yes (Death, Other)
  Sender: AMGEN
  Company Number: US-AMGEN-USASP2024159680

PATIENT
  Age: 47 Year
  Sex: Male

DRUGS (3)
  1. PREDNISONE [Suspect]
     Active Substance: PREDNISONE
     Indication: Hepatitis alcoholic
     Dosage: UNK
     Route: 065
  2. SODIUM CHLORIDE [Concomitant]
     Active Substance: SODIUM CHLORIDE
  3. LACTATED RINGERS SOLUTION [Concomitant]
     Active Substance: CALCIUM CHLORIDE\POTASSIUM CHLORIDE\SODIUM CHLORIDE\SODIUM LACTATE
     Route: 042

REACTIONS (26)
  - Death [Fatal]
  - Acute hepatic failure [Unknown]
  - Hepatic encephalopathy [Unknown]
  - Hallucination, visual [Unknown]
  - Cryptococcosis [Unknown]
  - Thrombocytopenia [Recovering/Resolving]
  - Blood loss anaemia [Recovering/Resolving]
  - Rectal haemorrhage [Recovering/Resolving]
  - Lactic acidosis [Unknown]
  - Acute respiratory failure [Recovering/Resolving]
  - Pneumonia [Unknown]
  - Pericardial effusion [Unknown]
  - Respiratory distress [Unknown]
  - Pericarditis fungal [Unknown]
  - Agitation [Unknown]
  - Blood fibrinogen decreased [Recovering/Resolving]
  - Haemoglobin decreased [Recovering/Resolving]
  - Blood bilirubin increased [Recovering/Resolving]
  - Alanine aminotransferase increased [Recovering/Resolving]
  - Aspartate aminotransferase increased [Recovering/Resolving]
  - Hyponatraemia [Recovering/Resolving]
  - Restlessness [Unknown]
  - Mental status changes [Unknown]
  - Off label use [Unknown]
  - Blood lactic acid increased [Recovering/Resolving]
  - International normalised ratio increased [Recovering/Resolving]
